FAERS Safety Report 4297234-6 (Version None)
Quarter: 2004Q1

REPORT INFORMATION
  Report Type: 
  Country: None (occurrence: None)
  Receive Date: 20040217
  Receipt Date: 20040205
  Transmission Date: 20041129
  Serious: Yes (Hospitalization)
  Sender: FDA-Public Use
  Company Number: 7366

PATIENT
  Age: 83 Year
  Sex: Male

DRUGS (6)
  1. MORPHINE SULFATE [Suspect]
     Indication: NECK PAIN
     Dosage: 10 MG BID PO
     Route: 048
     Dates: start: 20040119
  2. CO-CODAMOL [Suspect]
     Indication: NECK PAIN
     Dosage: 530 MG QID PO
     Route: 048
     Dates: start: 20040118, end: 20040121
  3. NIFEDIPINE [Concomitant]
  4. FRUSEMIDE [Concomitant]
  5. DIPYRIDAMOLE [Concomitant]
  6. AMINOPHYLLINE [Concomitant]

REACTIONS (3)
  - CIRCULATORY COLLAPSE [None]
  - NAUSEA [None]
  - SOMNOLENCE [None]
